FAERS Safety Report 10728096 (Version 1)
Quarter: 2015Q1

REPORT INFORMATION
  Report Type: Other
  Country: IT (occurrence: IT)
  Receive Date: 20150121
  Receipt Date: 20150121
  Transmission Date: 20150721
  Serious: Yes (Death, Hospitalization)
  Sender: FDA-Public Use
  Company Number: IT-ACTELION-A-CH2015-111269

PATIENT
  Age: 38 Year
  Sex: Female

DRUGS (4)
  1. TRACLEER [Suspect]
     Active Substance: BOSENTAN\BOSENTAN MONOHYDRATE
     Indication: PULMONARY ARTERIAL HYPERTENSION
     Dosage: 125 MG, BID
     Route: 048
  2. WARFARIN [Concomitant]
     Active Substance: WARFARIN
  3. FUROSEMIDE. [Concomitant]
     Active Substance: FUROSEMIDE
     Dosage: 125 MG, UNK
  4. PROSTAGLANDIN I2 [Concomitant]
     Route: 042

REACTIONS (5)
  - Dyspnoea [Not Recovered/Not Resolved]
  - Pulmonary haemorrhage [Fatal]
  - Pulmonary oedema [Fatal]
  - Gene mutation identification test positive [Unknown]
  - Cardiogenic shock [Fatal]
